FAERS Safety Report 11905718 (Version 1)
Quarter: 2016Q1

REPORT INFORMATION
  Report Type: Spontaneous
  Country: US (occurrence: US)
  Receive Date: 20160111
  Receipt Date: 20160111
  Transmission Date: 20160526
  Serious: No
  Sender: FDA-Public Use
  Company Number: US-TEVA-601860USA

PATIENT
  Sex: Male

DRUGS (1)
  1. LEVALBUTEROL. [Suspect]
     Active Substance: LEVALBUTEROL
     Indication: ASTHMA
     Dosage: 1.25 MG / 3 ML
     Route: 055
     Dates: start: 20151013

REACTIONS (2)
  - Drug ineffective [Unknown]
  - Adverse event [Unknown]
